FAERS Safety Report 7587426-2 (Version None)
Quarter: 2011Q3

REPORT INFORMATION
  Report Type: 
  Country: None (occurrence: None)
  Receive Date: 20110704
  Receipt Date: 20110624
  Transmission Date: 20111222
  Serious: Yes (Hospitalization, Other)
  Sender: FDA-Public Use
  Company Number: GB-BIOGENIDEC-2010BI041367

PATIENT
  Age: 24 Year
  Sex: Male

DRUGS (3)
  1. KEPPRA [Concomitant]
  2. TYSABRI [Suspect]
     Indication: PRODUCT USED FOR UNKNOWN INDICATION
     Route: 042
     Dates: start: 20090101
  3. VALPROATE SODIUM [Concomitant]

REACTIONS (2)
  - EPILEPSY [None]
  - CONVULSION [None]
